FAERS Safety Report 24527238 (Version 1)
Quarter: 2024Q4

REPORT INFORMATION
  Report Type: Report from Study
  Country: US (occurrence: US)
  Receive Date: 20241021
  Receipt Date: 20241021
  Transmission Date: 20250115
  Serious: No
  Sender: ROCHE
  Company Number: US-ROCHE-3503841

PATIENT
  Age: 78 Year
  Sex: Male

DRUGS (7)
  1. COTELLIC [Suspect]
     Active Substance: COBIMETINIB
     Indication: Histiocytic sarcoma
     Dosage: 3 TABLETS BY MOUTH EVERY DAY 3 WEEKS ON, 1 WEEK OFF
     Route: 048
  2. COTELLIC [Suspect]
     Active Substance: COBIMETINIB
     Indication: Myocardial ischaemia
  3. COTELLIC [Suspect]
     Active Substance: COBIMETINIB
     Indication: Erdheim-Chester disease
  4. COTELLIC [Suspect]
     Active Substance: COBIMETINIB
     Indication: BRAF V600E mutation positive
  5. COTELLIC [Suspect]
     Active Substance: COBIMETINIB
     Indication: Renal impairment
  6. COTELLIC [Suspect]
     Active Substance: COBIMETINIB
     Indication: Nephropathy
  7. COTELLIC [Suspect]
     Active Substance: COBIMETINIB
     Indication: Histiocytosis

REACTIONS (1)
  - Appendicitis [Unknown]
